FAERS Safety Report 8030969 (Version 2)
Quarter: 2012Q4

REPORT INFORMATION
  Report Type: 
  Country: US (occurrence: US)
  Receive Date: 20110712
  Receipt Date: 20121207
  Transmission Date: 20130627
  Serious: Yes (Death, Hospitalization)
  Sender: FDA-Public Use
  Company Number: US-GLAXOSMITHKLINE-A0909691A

PATIENT
  Age: 75 Year
  Sex: Male

DRUGS (1)
  1. AVANDIA [Suspect]
     Indication: TYPE 2 DIABETES MELLITUS
     Dosage: 4MG Twice per day
     Route: 048
     Dates: start: 199912, end: 200510

REACTIONS (3)
  - Respiratory arrest [Fatal]
  - Cerebrovascular accident [Unknown]
  - Cardiovascular disorder [Unknown]
